FAERS Safety Report 9090123 (Version 1)
Quarter: 2013Q1

REPORT INFORMATION
  Report Type: Report from Study
  Country: US (occurrence: US)
  Receive Date: 20130201
  Receipt Date: 20130201
  Transmission Date: 20140127
  Serious: No
  Sender: FDA-Public Use
  Company Number: US-ABBOTT-12P-163-1025700-00

PATIENT
  Age: 40 Year
  Sex: Female
  Weight: 49.49 kg

DRUGS (2)
  1. HUMIRA [Suspect]
     Indication: CROHN^S DISEASE
     Dates: start: 20121214, end: 20121214
  2. MULTIVITAMINS [Concomitant]
     Indication: SUPPLEMENTATION THERAPY

REACTIONS (2)
  - Joint stiffness [Not Recovered/Not Resolved]
  - Decreased appetite [Not Recovered/Not Resolved]
